FAERS Safety Report 4523763-3 (Version None)
Quarter: 2004Q4

REPORT INFORMATION
  Report Type: 
  Country: None (occurrence: None)
  Receive Date: 20041210
  Receipt Date: 20041210
  Transmission Date: 20050328
  Serious: Yes (Life-Threatening)
  Sender: FDA-Public Use
  Company Number: None

PATIENT
  Weight: 65 kg

DRUGS (3)
  1. PROTONIX [Suspect]
     Indication: ABSCESS
     Dosage: 40MG  Q12H  INTRAVENOUS
     Route: 042
     Dates: start: 20040928, end: 20041120
  2. PROTONIX [Suspect]
     Indication: PANCREATITIS
     Dosage: 40MG  Q12H  INTRAVENOUS
     Route: 042
     Dates: start: 20040928, end: 20041120
  3. TPN [Concomitant]

REACTIONS (3)
  - DERMATITIS EXFOLIATIVE [None]
  - STEVENS-JOHNSON SYNDROME [None]
  - URTICARIA [None]
